FAERS Safety Report 16417596 (Version 3)
Quarter: 2019Q3

REPORT INFORMATION
  Report Type: Spontaneous
  Country: PR (occurrence: PR)
  Receive Date: 20190611
  Receipt Date: 20190805
  Transmission Date: 20191004
  Serious: Yes (Other)
  Sender: FDA-Public Use
  Company Number: PR-PFIZER INC-2019248697

PATIENT
  Age: 51 Year
  Sex: Female
  Weight: 100 kg

DRUGS (2)
  1. IBRANCE [Suspect]
     Active Substance: PALBOCICLIB
     Indication: BREAST CANCER FEMALE
     Dosage: 125 MG, CYCLIC (DAILY ON 21 DAYS AND OFF 7 DAYS)
     Route: 048
     Dates: start: 20181022
  2. IBRANCE [Suspect]
     Active Substance: PALBOCICLIB
     Dosage: 125 MG, CYCLIC (DAILY ON 21 DAYS AND OFF 7 DAYS)
     Route: 048
     Dates: start: 20190311

REACTIONS (5)
  - Weight increased [Unknown]
  - Mental disorder [Unknown]
  - Hypersomnia [Unknown]
  - Anxiety [Unknown]
  - Increased appetite [Unknown]

NARRATIVE: CASE EVENT DATE: 20190603
